FAERS Safety Report 6447489-4 (Version None)
Quarter: 2009Q4

REPORT INFORMATION
  Report Type: 
  Country: None (occurrence: None)
  Receive Date: 20091119
  Receipt Date: 20090221
  Transmission Date: 20100525
  Serious: Yes (Other)
  Sender: FDA-Public Use
  Company Number: US-AMGEN-QUU316612

PATIENT
  Sex: Female

DRUGS (15)
  1. ENBREL [Suspect]
     Indication: RHEUMATOID ARTHRITIS
     Route: 058
     Dates: start: 20020101, end: 20081001
  2. CELEBREX [Concomitant]
  3. COUMADIN [Concomitant]
  4. DIOVAN HCT [Concomitant]
  5. OXYBUTYNIN CHLORIDE [Concomitant]
  6. METFORMIN HCL [Concomitant]
  7. AMBIEN [Concomitant]
  8. JANUVIA [Concomitant]
  9. WELLBUTRIN [Concomitant]
  10. ZANTAC [Concomitant]
  11. NEXIUM [Concomitant]
  12. LOVASTATIN [Concomitant]
  13. COMBIVENT [Concomitant]
  14. SPIRIVA [Concomitant]
  15. OSCAL D [Concomitant]

REACTIONS (1)
  - NON-SMALL CELL LUNG CANCER [None]
